FAERS Safety Report 11095479 (Version 1)
Quarter: 2015Q2

REPORT INFORMATION
  Report Type: Report from Study
  Country: AU (occurrence: AU)
  Receive Date: 20150506
  Receipt Date: 20150506
  Transmission Date: 20150821
  Serious: Yes (Other)
  Sender: FDA-Public Use
  Company Number: AU-ABBVIE-15P-008-1385393-00

PATIENT
  Age: 73 Year
  Sex: Male

DRUGS (1)
  1. LUCRIN [Suspect]
     Active Substance: LEUPROLIDE ACETATE
     Indication: PRODUCT USED FOR UNKNOWN INDICATION
     Dosage: UNKNOWN
     Route: 065
     Dates: start: 20131223

REACTIONS (1)
  - Lung neoplasm malignant [Unknown]

NARRATIVE: CASE EVENT DATE: 201402
